FAERS Safety Report 4318823-6 (Version None)
Quarter: 2004Q1

REPORT INFORMATION
  Report Type: 
  Country: None (occurrence: None)
  Receive Date: 20040315
  Receipt Date: 20040301
  Transmission Date: 20041129
  Serious: Yes (Hospitalization)
  Sender: FDA-Public Use
  Company Number: JP-JNJFOC-20040200329

PATIENT
  Age: 56 Year
  Sex: Female
  Weight: 53 kg

DRUGS (6)
  1. REMICADE [Suspect]
     Indication: RHEUMATOID ARTHRITIS
     Dosage: 3 MG/KG, 1IN 1 AS NECESSARY, INTRAVENOUS DRIP
     Route: 041
     Dates: start: 20040115, end: 20040115
  2. RHEUMATREX [Concomitant]
  3. ISONIAZID [Concomitant]
  4. PREDNISOLONE [Concomitant]
  5. INDOMETHACIN [Concomitant]
  6. FOLIAMIN (FOLIC ACID) [Concomitant]

REACTIONS (1)
  - FOLLICULITIS [None]
